FAERS Safety Report 6996678-9 (Version None)
Quarter: 2010Q3

REPORT INFORMATION
  Report Type: 
  Country: None (occurrence: None)
  Receive Date: 20100918
  Receipt Date: 20090528
  Transmission Date: 20110219
  Serious: No
  Sender: FDA-Public Use
  Company Number: US-WYE-H09522209

PATIENT
  Age: 52 Year
  Sex: Female

DRUGS (2)
  1. EFFEXOR XR [Suspect]
     Dosage: 150 MG, FREQUENCY UNSPECIFIED
     Route: 048
  2. EFFEXOR XR [Suspect]
     Dosage: STOPPED OVER A 3 MONTH PERIOD
     Route: 048

REACTIONS (1)
  - POSTMENOPAUSAL HAEMORRHAGE [None]
